FAERS Safety Report 6457216-2 (Version None)
Quarter: 2009Q4

REPORT INFORMATION
  Report Type: 
  Country: None (occurrence: None)
  Receive Date: 20091125
  Receipt Date: 20091113
  Transmission Date: 20100525
  Serious: Yes (Other)
  Sender: FDA-Public Use
  Company Number: BE-ELI_LILLY_AND_COMPANY-BE200911004097

PATIENT
  Age: 48 Year
  Sex: Male
  Weight: 78.2 kg

DRUGS (1)
  1. BYETTA [Suspect]
     Indication: DIABETES MELLITUS
     Dosage: 10 UG, UNKNOWN

REACTIONS (3)
  - BLOOD AMYLASE INCREASED [None]
  - GASTROINTESTINAL DISORDER [None]
  - LIPASE INCREASED [None]
